FAERS Safety Report 13413963 (Version 4)
Quarter: 2023Q2

REPORT INFORMATION
  Report Type: Spontaneous
  Country: US (occurrence: US)
  Receive Date: 20170406
  Receipt Date: 20230427
  Transmission Date: 20230721
  Serious: No
  Sender: FDA-Public Use
  Company Number: US-JNJFOC-20170315512

PATIENT
  Age: 19 Year
  Sex: Male

DRUGS (5)
  1. RISPERDAL [Suspect]
     Active Substance: RISPERIDONE
     Indication: Product used for unknown indication
     Route: 048
     Dates: start: 20130726, end: 20131024
  2. INVEGA [Suspect]
     Active Substance: PALIPERIDONE
     Indication: Product used for unknown indication
     Route: 048
     Dates: end: 2014
  3. INVEGA SUSTENNA [Suspect]
     Active Substance: PALIPERIDONE PALMITATE
     Indication: Psychotic disorder
     Dosage: 156 MG
     Route: 030
     Dates: start: 20130728
  4. INVEGA SUSTENNA [Suspect]
     Active Substance: PALIPERIDONE PALMITATE
     Indication: Bipolar disorder
     Route: 030
     Dates: start: 20130802, end: 20131024
  5. INVEGA SUSTENNA [Suspect]
     Active Substance: PALIPERIDONE PALMITATE

REACTIONS (2)
  - Gynaecomastia [Recovering/Resolving]
  - Emotional distress [Unknown]

NARRATIVE: CASE EVENT DATE: 20131001
